FAERS Safety Report 21779806 (Version 1)
Quarter: 2022Q4

REPORT INFORMATION
  Report Type: Report from Study
  Country: SE (occurrence: SE)
  Receive Date: 20221226
  Receipt Date: 20221226
  Transmission Date: 20230113
  Serious: Yes (Other)
  Sender: FDA-Public Use
  Company Number: SE-ABBVIE-4249447

PATIENT
  Age: 71 Year
  Sex: Male

DRUGS (2)
  1. CARBIDOPA\LEVODOPA [Suspect]
     Active Substance: CARBIDOPA\LEVODOPA
     Indication: Parkinson^s disease
     Dosage: CURRENT DOSAGE: MORNING DOSE: 7 ML. CONTINUOUS DOSE: 3.0 ML/H. EXTRA DOSE: 1.0 ML
     Route: 050
     Dates: start: 20221222
  2. CARBIDOPA\LEVODOPA [Suspect]
     Active Substance: CARBIDOPA\LEVODOPA
     Dosage: THERAPY DURATION: REMAINS AT 16 HOURS
     Dates: start: 20171019

REACTIONS (5)
  - Gastric ulcer [Recovering/Resolving]
  - Bezoar [Recovered/Resolved]
  - Device kink [Recovered/Resolved]
  - Abdominal discomfort [Unknown]
  - Abdominal pain [Unknown]

NARRATIVE: CASE EVENT DATE: 20221101
